FAERS Safety Report 8313024-9 (Version None)
Quarter: 2012Q2

REPORT INFORMATION
  Report Type: 
  Country: None (occurrence: None)
  Receive Date: 20120426
  Receipt Date: 20120417
  Transmission Date: 20120825
  Serious: Yes (Other)
  Sender: FDA-Public Use
  Company Number: GB-JNJFOC-20120408989

PATIENT
  Sex: Male

DRUGS (2)
  1. SIMPONI [Suspect]
     Indication: PRODUCT USED FOR UNKNOWN INDICATION
     Route: 058
     Dates: start: 20120405
  2. SIMPONI [Suspect]
     Route: 058

REACTIONS (1)
  - HAEMORRHOIDAL HAEMORRHAGE [None]
